FAERS Safety Report 6194519-3 (Version None)
Quarter: 2009Q2

REPORT INFORMATION
  Report Type: 
  Country: None (occurrence: None)
  Receive Date: 20090519
  Receipt Date: 20090511
  Transmission Date: 20091009
  Serious: Yes (Hospitalization, Other)
  Sender: FDA-Public Use
  Company Number: AT-JNJFOC-20090502320

PATIENT
  Age: 33 Year
  Sex: Female
  Weight: 95 kg

DRUGS (5)
  1. RISPERDAL [Suspect]
     Route: 048
  2. RISPERDAL [Suspect]
     Indication: DRUG USE FOR UNKNOWN INDICATION
     Dosage: SINCE YEARS
     Route: 048
  3. DEPAKINE CRONO RETARD [Concomitant]
     Route: 065
  4. TRESLEEN [Concomitant]
     Route: 065
  5. PRAXITEN [Concomitant]
     Route: 065

REACTIONS (4)
  - AKATHISIA [None]
  - AMENORRHOEA [None]
  - BLOOD PROLACTIN INCREASED [None]
  - HOSPITALISATION [None]
